FAERS Safety Report 18425750 (Version 1)
Quarter: 2020Q4

REPORT INFORMATION
  Report Type: Spontaneous
  Country: US (occurrence: US)
  Receive Date: 20201025
  Receipt Date: 20201025
  Transmission Date: 20210114
  Serious: No
  Sender: FDA-Public Use
  Company Number: None

PATIENT
  Age: 67 Year
  Sex: Male
  Weight: 108.45 kg

DRUGS (7)
  1. VITAMIN D3 [Concomitant]
     Active Substance: CHOLECALCIFEROL
  2. EQUATE FAMOTIDINE TABLETS 20 MG [Suspect]
     Active Substance: FAMOTIDINE
     Indication: GASTRIC DISORDER
     Dosage: ?          QUANTITY:1 TABLET(S);?
     Route: 048
  3. FENOFIBRATE. [Concomitant]
     Active Substance: FENOFIBRATE
  4. BURDOCK ROOT [Concomitant]
  5. GARLIC. [Concomitant]
     Active Substance: GARLIC
  6. INSULIN [Concomitant]
     Active Substance: INSULIN NOS
  7. CALCUM CARBONATE [Concomitant]

REACTIONS (4)
  - Nightmare [None]
  - Chest discomfort [None]
  - Nausea [None]
  - Mental disorder [None]

NARRATIVE: CASE EVENT DATE: 20201025
